FAERS Safety Report 22234745 (Version 1)
Quarter: 2023Q2

REPORT INFORMATION
  Report Type: Spontaneous
  Country: ES (occurrence: ES)
  Receive Date: 20230420
  Receipt Date: 20230420
  Transmission Date: 20230722
  Serious: Yes (Hospitalization, Other)
  Sender: FDA-Public Use
  Company Number: ES-ITALFARMACO-2023-000484

PATIENT
  Age: 33 Year
  Sex: Female

DRUGS (5)
  1. DIAZEPAM [Suspect]
     Active Substance: DIAZEPAM
     Indication: Drug abuse
  2. ACETAMINOPHEN [Suspect]
     Active Substance: ACETAMINOPHEN
     Indication: Drug abuse
  3. CODEINE [Suspect]
     Active Substance: CODEINE
     Indication: Drug abuse
  4. CAFFEINE [Suspect]
     Active Substance: CAFFEINE
     Indication: Drug abuse
  5. KETAMINE [Suspect]
     Active Substance: KETAMINE
     Indication: Drug abuse

REACTIONS (11)
  - Discomfort [Unknown]
  - Nausea [Unknown]
  - Abdominal pain upper [Unknown]
  - Mydriasis [Unknown]
  - Dyspepsia [Unknown]
  - Drug abuse [Unknown]
  - Vomiting [Unknown]
  - Palpitations [Unknown]
  - Hepatitis toxic [Recovering/Resolving]
  - Condition aggravated [Recovering/Resolving]
  - Hepatic function abnormal [Recovering/Resolving]
